FAERS Safety Report 5646752-4 (Version None)
Quarter: 2008Q1

REPORT INFORMATION
  Report Type: 
  Country: None (occurrence: None)
  Receive Date: 20080303
  Receipt Date: 20080221
  Transmission Date: 20080703
  Serious: Yes (Hospitalization)
  Sender: FDA-Public Use
  Company Number: GB-ROCHE-549069

PATIENT
  Age: 59 Year
  Sex: Female
  Weight: 70.7 kg

DRUGS (10)
  1. ORLISTAT [Suspect]
     Indication: OBESITY
     Route: 048
     Dates: start: 20071009, end: 20080216
  2. ORLISTAT [Suspect]
     Route: 048
     Dates: start: 20080220
  3. ESOMEPRAZOLE MAGNESIUM [Concomitant]
     Indication: UNEVALUABLE EVENT
  4. LIPITOR [Concomitant]
  5. BISOPROLOL FUMARATE [Concomitant]
  6. NICORANDIL [Concomitant]
  7. FLECAINIDE ACETATE [Concomitant]
  8. ASPIRIN [Concomitant]
  9. DILTIAZAM [Concomitant]
  10. FRUSEMIDE [Concomitant]

REACTIONS (1)
  - ANGINA PECTORIS [None]
